FAERS Safety Report 4337113-9 (Version None)
Quarter: 2004Q1

REPORT INFORMATION
  Report Type: 
  Country: None (occurrence: None)
  Receive Date: 20040329
  Receipt Date: 20040121
  Transmission Date: 20041129
  Serious: No
  Sender: FDA-Public Use
  Company Number: USA040157248

PATIENT
  Age: 53 Year
  Sex: Female

DRUGS (2)
  1. STRATTERA [Suspect]
     Dosage: 80 MG
     Dates: start: 20031001
  2. WELLBUTRIN [Concomitant]

REACTIONS (3)
  - DRUG EFFECT DECREASED [None]
  - DRY MOUTH [None]
  - INCREASED APPETITE [None]
